FAERS Safety Report 10267496 (Version 2)
Quarter: 2014Q4

REPORT INFORMATION
  Report Type: Spontaneous
  Country: GB (occurrence: GB)
  Receive Date: 20140630
  Receipt Date: 20141125
  Transmission Date: 20150528
  Serious: Yes (Death, Other)
  Sender: FDA-Public Use
  Company Number: GB-PFIZER INC-2014175729

PATIENT
  Age: 53 Year
  Sex: Male
  Weight: 131 kg

DRUGS (3)
  1. VENLAFAXINE HCL [Suspect]
     Active Substance: VENLAFAXINE HYDROCHLORIDE
     Indication: DEPRESSION
     Dosage: 150 MG, 2X/DAY
     Route: 048
     Dates: start: 20110506
  2. SODIUM VALPROATE SANDOZ [Concomitant]
     Indication: DEPRESSION
     Dosage: 200 MG, 3X/DAY
     Route: 048
     Dates: start: 20120806
  3. IBUPROFEN. [Concomitant]
     Active Substance: IBUPROFEN
     Dosage: UNK

REACTIONS (3)
  - Coronary artery occlusion [Fatal]
  - Unresponsive to stimuli [Not Recovered/Not Resolved]
  - Chest pain [Not Recovered/Not Resolved]

NARRATIVE: CASE EVENT DATE: 201406
